FAERS Safety Report 23592373 (Version 9)
Quarter: 2025Q2

REPORT INFORMATION
  Report Type: Spontaneous
  Country: DE (occurrence: DE)
  Receive Date: 20240304
  Receipt Date: 20250521
  Transmission Date: 20250716
  Serious: Yes (Life-Threatening, Hospitalization, Other)
  Sender: SANDOZ
  Company Number: DE-BRISTOL-MYERS SQUIBB COMPANY-2024-003077

PATIENT
  Age: 60 Year
  Sex: Female

DRUGS (291)
  1. CARBOPLATIN [Suspect]
     Active Substance: CARBOPLATIN
     Indication: Non-small cell lung cancer
     Dosage: 388 MG, TIW
     Route: 042
     Dates: start: 20231206, end: 20231206
  2. OPDIVO [Suspect]
     Active Substance: NIVOLUMAB
     Indication: Non-small cell lung cancer
     Dosage: 360 MG, TIW
     Route: 042
     Dates: start: 20231206, end: 20231227
  3. OPDIVO [Suspect]
     Active Substance: NIVOLUMAB
     Dosage: 360 MG, TIW
     Route: 042
     Dates: start: 20231206, end: 20231227
  4. OPDIVO [Suspect]
     Active Substance: NIVOLUMAB
     Dosage: 360 MG, TIW
     Route: 042
     Dates: start: 20231206, end: 20240117
  5. OPDIVO [Suspect]
     Active Substance: NIVOLUMAB
     Dosage: 360 MG, TIW
     Route: 042
     Dates: start: 20231206
  6. OPDIVO [Suspect]
     Active Substance: NIVOLUMAB
     Dosage: 360 MG, TIW
     Route: 042
     Dates: start: 20231206
  7. OPDIVO [Suspect]
     Active Substance: NIVOLUMAB
     Dosage: 360 MG, TIW
     Route: 042
     Dates: start: 20231206
  8. PEMETREXED [Suspect]
     Active Substance: PEMETREXED
     Indication: Non-small cell lung cancer
     Dosage: UNK
     Route: 065
     Dates: start: 20231206, end: 20231206
  9. YERVOY [Suspect]
     Active Substance: IPILIMUMAB
     Route: 042
     Dates: start: 20231206, end: 20240117
  10. YERVOY [Suspect]
     Active Substance: IPILIMUMAB
     Indication: Non-small cell lung cancer
     Route: 042
     Dates: start: 20231206, end: 20231206
  11. ALIZAPRIDE [Concomitant]
     Active Substance: ALIZAPRIDE
     Indication: Prophylaxis
     Route: 065
     Dates: start: 20231206, end: 20231206
  12. ASPIRIN [Concomitant]
     Active Substance: ASPIRIN
     Indication: Product used for unknown indication
     Route: 065
  13. BISOPROLOL [Concomitant]
     Active Substance: BISOPROLOL
     Indication: Product used for unknown indication
     Route: 065
  14. BISOPROLOL [Concomitant]
     Active Substance: BISOPROLOL
     Route: 065
  15. BISOPROLOL [Concomitant]
     Active Substance: BISOPROLOL
     Route: 065
  16. BISOPROLOL [Concomitant]
     Active Substance: BISOPROLOL
     Route: 065
  17. BISOPROLOL [Concomitant]
     Active Substance: BISOPROLOL
     Route: 065
  18. BISOPROLOL [Concomitant]
     Active Substance: BISOPROLOL
     Route: 065
  19. BISOPROLOL [Concomitant]
     Active Substance: BISOPROLOL
     Route: 065
  20. BISOPROLOL [Concomitant]
     Active Substance: BISOPROLOL
     Route: 065
  21. BISOPROLOL [Concomitant]
     Active Substance: BISOPROLOL
     Route: 065
  22. BISOPROLOL [Concomitant]
     Active Substance: BISOPROLOL
     Route: 065
  23. BISOPROLOL [Concomitant]
     Active Substance: BISOPROLOL
     Route: 065
  24. BISOPROLOL [Concomitant]
     Active Substance: BISOPROLOL
     Route: 065
  25. BISOPROLOL [Concomitant]
     Active Substance: BISOPROLOL
     Route: 065
  26. BISOPROLOL [Concomitant]
     Active Substance: BISOPROLOL
     Route: 065
  27. BISOPROLOL [Concomitant]
     Active Substance: BISOPROLOL
     Route: 065
  28. BISOPROLOL [Concomitant]
     Active Substance: BISOPROLOL
     Route: 065
  29. BISOPROLOL [Concomitant]
     Active Substance: BISOPROLOL
     Route: 065
  30. BISOPROLOL [Concomitant]
     Active Substance: BISOPROLOL
     Route: 065
  31. BISOPROLOL [Concomitant]
     Active Substance: BISOPROLOL
     Route: 065
  32. BISOPROLOL [Concomitant]
     Active Substance: BISOPROLOL
     Route: 065
  33. BISOPROLOL [Concomitant]
     Active Substance: BISOPROLOL
     Route: 065
  34. CIPRALEX [Concomitant]
     Active Substance: ESCITALOPRAM OXALATE
     Indication: Product used for unknown indication
     Route: 065
     Dates: start: 20231213, end: 20231218
  35. CIPRALEX [Concomitant]
     Active Substance: ESCITALOPRAM OXALATE
     Route: 065
     Dates: start: 20231213, end: 20231218
  36. CIPRALEX [Concomitant]
     Active Substance: ESCITALOPRAM OXALATE
     Route: 065
  37. CIPRALEX [Concomitant]
     Active Substance: ESCITALOPRAM OXALATE
     Route: 065
  38. CIPRALEX [Concomitant]
     Active Substance: ESCITALOPRAM OXALATE
     Route: 065
  39. CIPRALEX [Concomitant]
     Active Substance: ESCITALOPRAM OXALATE
     Route: 065
  40. CLEMASTINE [Concomitant]
     Active Substance: CLEMASTINE
     Indication: Prophylaxis
     Route: 065
     Dates: start: 20231206, end: 20231206
  41. CLEMASTINE [Concomitant]
     Active Substance: CLEMASTINE
     Route: 065
     Dates: start: 20231206, end: 20231206
  42. CLEMASTINE [Concomitant]
     Active Substance: CLEMASTINE
     Route: 065
     Dates: start: 20231206, end: 20231206
  43. CLEMASTINE [Concomitant]
     Active Substance: CLEMASTINE
     Route: 065
     Dates: start: 20231206, end: 20231206
  44. CLEMASTINE [Concomitant]
     Active Substance: CLEMASTINE
     Route: 065
     Dates: start: 20231206, end: 20231206
  45. CLEMASTINE [Concomitant]
     Active Substance: CLEMASTINE
     Route: 065
     Dates: start: 20231206, end: 20231206
  46. CLEMASTINE [Concomitant]
     Active Substance: CLEMASTINE
     Route: 065
     Dates: start: 20231206, end: 20231206
  47. CLEMASTINE [Concomitant]
     Active Substance: CLEMASTINE
     Route: 065
     Dates: start: 20231206, end: 20231206
  48. CLEMASTINE [Concomitant]
     Active Substance: CLEMASTINE
     Route: 065
     Dates: start: 20231206, end: 20231206
  49. CLEMASTINE [Concomitant]
     Active Substance: CLEMASTINE
     Route: 065
     Dates: start: 20231206, end: 20231206
  50. CLEMASTINE [Concomitant]
     Active Substance: CLEMASTINE
     Route: 065
     Dates: start: 20231206, end: 20231206
  51. CLEMASTINE [Concomitant]
     Active Substance: CLEMASTINE
     Route: 065
     Dates: start: 20231206, end: 20231206
  52. CLEMASTINE [Concomitant]
     Active Substance: CLEMASTINE
     Route: 065
     Dates: start: 20231206, end: 20231206
  53. CLEMASTINE [Concomitant]
     Active Substance: CLEMASTINE
     Route: 065
     Dates: start: 20231206, end: 20231206
  54. CLEMASTINE [Concomitant]
     Active Substance: CLEMASTINE
     Route: 065
     Dates: start: 20231206, end: 20231206
  55. CLEMASTINE [Concomitant]
     Active Substance: CLEMASTINE
     Route: 065
     Dates: start: 20231206, end: 20231206
  56. CLEMASTINE [Concomitant]
     Active Substance: CLEMASTINE
     Route: 065
     Dates: start: 20231206, end: 20231206
  57. CLEMASTINE [Concomitant]
     Active Substance: CLEMASTINE
     Route: 065
     Dates: start: 20231206, end: 20231206
  58. CLEMASTINE [Concomitant]
     Active Substance: CLEMASTINE
     Route: 065
     Dates: start: 20231206, end: 20231206
  59. CLEMASTINE [Concomitant]
     Active Substance: CLEMASTINE
     Route: 065
     Dates: start: 20231206, end: 20231206
  60. CLEMASTINE [Concomitant]
     Active Substance: CLEMASTINE
     Route: 065
     Dates: start: 20231206, end: 20231206
  61. CLEMASTINE [Concomitant]
     Active Substance: CLEMASTINE
     Route: 065
     Dates: start: 20231206, end: 20231206
  62. CLEMASTINE [Concomitant]
     Active Substance: CLEMASTINE
     Route: 065
     Dates: start: 20231206, end: 20231206
  63. CLEMASTINE [Concomitant]
     Active Substance: CLEMASTINE
     Route: 065
     Dates: start: 20231206, end: 20231206
  64. CLEMASTINE [Concomitant]
     Active Substance: CLEMASTINE
     Route: 065
     Dates: start: 20231206, end: 20231206
  65. CLEMASTINE [Concomitant]
     Active Substance: CLEMASTINE
     Route: 065
     Dates: start: 20231206, end: 20231206
  66. CLEMASTINE [Concomitant]
     Active Substance: CLEMASTINE
     Route: 065
     Dates: start: 20231206, end: 20231206
  67. CLEMASTINE [Concomitant]
     Active Substance: CLEMASTINE
     Route: 065
     Dates: start: 20231206, end: 20231206
  68. CLEMASTINE [Concomitant]
     Active Substance: CLEMASTINE
     Route: 065
     Dates: start: 20231206, end: 20231206
  69. CLEMASTINE [Concomitant]
     Active Substance: CLEMASTINE
     Route: 065
     Dates: start: 20231206, end: 20231206
  70. DERMATOP [Concomitant]
     Active Substance: PREDNICARBATE
     Indication: Product used for unknown indication
     Route: 065
     Dates: start: 20240117, end: 20241007
  71. DEXAMETHASONE [Concomitant]
     Active Substance: DEXAMETHASONE
     Indication: Prophylaxis
     Route: 065
     Dates: start: 20231205, end: 20231213
  72. ESCITALOPRAM [Concomitant]
     Active Substance: ESCITALOPRAM OXALATE
     Indication: Product used for unknown indication
     Route: 065
     Dates: start: 20231213, end: 20231218
  73. ESCITALOPRAM [Concomitant]
     Active Substance: ESCITALOPRAM OXALATE
     Route: 065
     Dates: start: 20231212, end: 20231212
  74. ESCITALOPRAM [Concomitant]
     Active Substance: ESCITALOPRAM OXALATE
     Route: 065
     Dates: start: 20231213, end: 20231218
  75. ESCITALOPRAM [Concomitant]
     Active Substance: ESCITALOPRAM OXALATE
     Route: 065
     Dates: start: 20231213, end: 20231218
  76. ESCITALOPRAM [Concomitant]
     Active Substance: ESCITALOPRAM OXALATE
     Route: 065
     Dates: start: 20231213, end: 20231218
  77. ESCITALOPRAM [Concomitant]
     Active Substance: ESCITALOPRAM OXALATE
     Route: 065
     Dates: start: 20231213, end: 20231218
  78. ESCITALOPRAM [Concomitant]
     Active Substance: ESCITALOPRAM OXALATE
     Route: 065
     Dates: start: 20231213, end: 20231218
  79. ESCITALOPRAM [Concomitant]
     Active Substance: ESCITALOPRAM OXALATE
     Route: 065
     Dates: start: 20231213, end: 20231218
  80. ESCITALOPRAM [Concomitant]
     Active Substance: ESCITALOPRAM OXALATE
     Route: 065
     Dates: start: 20231213, end: 20231218
  81. ESCITALOPRAM [Concomitant]
     Active Substance: ESCITALOPRAM OXALATE
     Route: 065
     Dates: start: 20231213, end: 20231218
  82. ESCITALOPRAM [Concomitant]
     Active Substance: ESCITALOPRAM OXALATE
     Route: 065
     Dates: start: 20231213, end: 20231218
  83. ESCITALOPRAM [Concomitant]
     Active Substance: ESCITALOPRAM OXALATE
     Route: 065
     Dates: start: 20231213, end: 20231218
  84. ESCITALOPRAM [Concomitant]
     Active Substance: ESCITALOPRAM OXALATE
     Route: 065
  85. ESCITALOPRAM [Concomitant]
     Active Substance: ESCITALOPRAM OXALATE
     Route: 065
  86. FOLIC ACID [Concomitant]
     Active Substance: FOLIC ACID
     Indication: Prophylaxis
     Route: 065
     Dates: start: 20231127, end: 20231212
  87. FOLIC ACID [Concomitant]
     Active Substance: FOLIC ACID
     Route: 065
     Dates: start: 20231127, end: 20231212
  88. FOLIC ACID [Concomitant]
     Active Substance: FOLIC ACID
     Route: 065
     Dates: start: 20231127, end: 20231212
  89. FOLIC ACID [Concomitant]
     Active Substance: FOLIC ACID
     Route: 065
     Dates: start: 20231127, end: 20231212
  90. FOLIC ACID [Concomitant]
     Active Substance: FOLIC ACID
     Route: 065
     Dates: start: 20231127, end: 20231212
  91. FOLIC ACID [Concomitant]
     Active Substance: FOLIC ACID
     Route: 065
     Dates: start: 20231127, end: 20231212
  92. FOLIC ACID [Concomitant]
     Active Substance: FOLIC ACID
     Route: 065
     Dates: start: 20231127, end: 20231212
  93. FOLIC ACID [Concomitant]
     Active Substance: FOLIC ACID
     Route: 065
     Dates: start: 20231127, end: 20231212
  94. FOLIC ACID [Concomitant]
     Active Substance: FOLIC ACID
     Route: 065
     Dates: start: 20231127, end: 20231212
  95. FOLIC ACID [Concomitant]
     Active Substance: FOLIC ACID
     Route: 065
     Dates: start: 20231127, end: 20231212
  96. FOLIC ACID [Concomitant]
     Active Substance: FOLIC ACID
     Route: 065
     Dates: start: 20231213
  97. FOLIC ACID [Concomitant]
     Active Substance: FOLIC ACID
     Indication: Product used for unknown indication
     Route: 065
     Dates: start: 20231212, end: 20231212
  98. FOLIC ACID [Concomitant]
     Active Substance: FOLIC ACID
     Indication: Prophylaxis
     Route: 065
     Dates: start: 20231127, end: 20231212
  99. FOLIC ACID [Concomitant]
     Active Substance: FOLIC ACID
     Indication: Prophylaxis
     Route: 065
     Dates: start: 20231212, end: 20231212
  100. FOLIC ACID [Concomitant]
     Active Substance: FOLIC ACID
     Route: 065
     Dates: start: 20231212, end: 20231212
  101. FOLIC ACID [Concomitant]
     Active Substance: FOLIC ACID
     Route: 065
     Dates: start: 20231212, end: 20231212
  102. FOLIC ACID [Concomitant]
     Active Substance: FOLIC ACID
     Route: 065
     Dates: start: 20231212, end: 20231212
  103. FOLIC ACID [Concomitant]
     Active Substance: FOLIC ACID
     Route: 065
     Dates: start: 20231212, end: 20231212
  104. FOLIC ACID [Concomitant]
     Active Substance: FOLIC ACID
     Route: 065
     Dates: start: 20231212, end: 20231212
  105. FOLIC ACID [Concomitant]
     Active Substance: FOLIC ACID
     Route: 065
     Dates: start: 20231213
  106. FOLIC ACID [Concomitant]
     Active Substance: FOLIC ACID
     Route: 065
     Dates: start: 20231213
  107. FOLIC ACID [Concomitant]
     Active Substance: FOLIC ACID
     Route: 065
     Dates: start: 20231213
  108. FOLIC ACID [Concomitant]
     Active Substance: FOLIC ACID
     Route: 065
     Dates: start: 20231213
  109. FOLIC ACID [Concomitant]
     Active Substance: FOLIC ACID
     Route: 065
     Dates: start: 20231213
  110. GRANISETRON [Concomitant]
     Active Substance: GRANISETRON
     Indication: Prophylaxis
     Route: 065
     Dates: start: 20231206, end: 20231206
  111. HYDROMORPHONE [Concomitant]
     Active Substance: HYDROMORPHONE
     Indication: Product used for unknown indication
     Route: 065
  112. HYDROMORPHONE [Concomitant]
     Active Substance: HYDROMORPHONE
     Route: 065
     Dates: end: 20231218
  113. HYDROMORPHONE [Concomitant]
     Active Substance: HYDROMORPHONE
     Route: 065
     Dates: end: 20231218
  114. HYDROMORPHONE [Concomitant]
     Active Substance: HYDROMORPHONE
     Route: 065
     Dates: end: 20231218
  115. HYDROMORPHONE [Concomitant]
     Active Substance: HYDROMORPHONE
     Route: 065
     Dates: end: 20231218
  116. HYDROMORPHONE [Concomitant]
     Active Substance: HYDROMORPHONE
     Route: 065
     Dates: end: 20231218
  117. HYDROMORPHONE [Concomitant]
     Active Substance: HYDROMORPHONE
     Route: 065
     Dates: end: 20231218
  118. HYDROMORPHONE [Concomitant]
     Active Substance: HYDROMORPHONE
     Route: 065
     Dates: end: 20231218
  119. HYDROMORPHONE [Concomitant]
     Active Substance: HYDROMORPHONE
     Route: 065
  120. HYDROMORPHONE [Concomitant]
     Active Substance: HYDROMORPHONE
     Route: 065
  121. HYDROMORPHONE [Concomitant]
     Active Substance: HYDROMORPHONE
     Route: 065
  122. HYDROMORPHONE [Concomitant]
     Active Substance: HYDROMORPHONE
     Route: 065
  123. HYDROMORPHONE [Concomitant]
     Active Substance: HYDROMORPHONE
     Route: 065
  124. HYDROMORPHONE [Concomitant]
     Active Substance: HYDROMORPHONE
     Route: 065
  125. HYDROMORPHONE [Concomitant]
     Active Substance: HYDROMORPHONE
     Route: 065
  126. HYDROMORPHONE [Concomitant]
     Active Substance: HYDROMORPHONE
     Route: 065
  127. HYDROMORPHONE [Concomitant]
     Active Substance: HYDROMORPHONE
     Route: 065
  128. HYDROMORPHONE [Concomitant]
     Active Substance: HYDROMORPHONE
     Route: 065
  129. HYDROMORPHONE [Concomitant]
     Active Substance: HYDROMORPHONE
     Route: 065
  130. HYDROMORPHONE [Concomitant]
     Active Substance: HYDROMORPHONE
     Route: 065
  131. HYDROMORPHONE [Concomitant]
     Active Substance: HYDROMORPHONE
     Route: 065
  132. HYDROMORPHONE [Concomitant]
     Active Substance: HYDROMORPHONE
     Route: 065
  133. HYDROMORPHONE [Concomitant]
     Active Substance: HYDROMORPHONE
     Route: 065
  134. HYDROMORPHONE [Concomitant]
     Active Substance: HYDROMORPHONE
     Route: 065
  135. SODIUM PERCHLORATE [Concomitant]
     Active Substance: SODIUM PERCHLORATE
     Indication: Product used for unknown indication
     Route: 065
  136. SODIUM PERCHLORATE [Concomitant]
     Active Substance: SODIUM PERCHLORATE
     Route: 065
  137. SODIUM PERCHLORATE [Concomitant]
     Active Substance: SODIUM PERCHLORATE
     Route: 065
  138. SODIUM PERCHLORATE [Concomitant]
     Active Substance: SODIUM PERCHLORATE
     Route: 065
  139. SODIUM PERCHLORATE [Concomitant]
     Active Substance: SODIUM PERCHLORATE
     Route: 065
  140. SODIUM PERCHLORATE [Concomitant]
     Active Substance: SODIUM PERCHLORATE
     Route: 065
  141. SODIUM PERCHLORATE [Concomitant]
     Active Substance: SODIUM PERCHLORATE
     Route: 065
  142. SODIUM PERCHLORATE [Concomitant]
     Active Substance: SODIUM PERCHLORATE
     Route: 065
  143. SODIUM PERCHLORATE [Concomitant]
     Active Substance: SODIUM PERCHLORATE
     Route: 065
  144. SODIUM PERCHLORATE [Concomitant]
     Active Substance: SODIUM PERCHLORATE
     Route: 065
  145. SODIUM PERCHLORATE [Concomitant]
     Active Substance: SODIUM PERCHLORATE
     Route: 065
  146. SODIUM PERCHLORATE [Concomitant]
     Active Substance: SODIUM PERCHLORATE
     Route: 065
  147. SODIUM PERCHLORATE [Concomitant]
     Active Substance: SODIUM PERCHLORATE
     Route: 065
  148. SODIUM PERCHLORATE [Concomitant]
     Active Substance: SODIUM PERCHLORATE
     Route: 065
  149. SODIUM PERCHLORATE [Concomitant]
     Active Substance: SODIUM PERCHLORATE
     Route: 065
  150. SODIUM PERCHLORATE [Concomitant]
     Active Substance: SODIUM PERCHLORATE
     Route: 065
  151. SODIUM PERCHLORATE [Concomitant]
     Active Substance: SODIUM PERCHLORATE
     Route: 065
  152. SODIUM PERCHLORATE [Concomitant]
     Active Substance: SODIUM PERCHLORATE
     Route: 065
  153. SODIUM PERCHLORATE [Concomitant]
     Active Substance: SODIUM PERCHLORATE
     Route: 065
  154. SODIUM PERCHLORATE [Concomitant]
     Active Substance: SODIUM PERCHLORATE
     Route: 065
  155. SODIUM PERCHLORATE [Concomitant]
     Active Substance: SODIUM PERCHLORATE
     Route: 065
  156. CERTOPARIN SODIUM [Concomitant]
     Active Substance: CERTOPARIN SODIUM
     Indication: Prophylaxis
     Route: 065
  157. CERTOPARIN SODIUM [Concomitant]
     Active Substance: CERTOPARIN SODIUM
     Route: 065
     Dates: start: 20240326, end: 20240410
  158. CERTOPARIN SODIUM [Concomitant]
     Active Substance: CERTOPARIN SODIUM
     Route: 065
     Dates: start: 20240326, end: 20240410
  159. CERTOPARIN SODIUM [Concomitant]
     Active Substance: CERTOPARIN SODIUM
     Route: 065
     Dates: start: 20240326, end: 20240410
  160. CERTOPARIN SODIUM [Concomitant]
     Active Substance: CERTOPARIN SODIUM
     Route: 065
     Dates: start: 20240326, end: 20240410
  161. CERTOPARIN SODIUM [Concomitant]
     Active Substance: CERTOPARIN SODIUM
     Route: 065
     Dates: start: 20240326
  162. CERTOPARIN SODIUM [Concomitant]
     Active Substance: CERTOPARIN SODIUM
     Route: 065
     Dates: start: 20240326
  163. CERTOPARIN SODIUM [Concomitant]
     Active Substance: CERTOPARIN SODIUM
     Route: 065
     Dates: start: 20240326
  164. CERTOPARIN SODIUM [Concomitant]
     Active Substance: CERTOPARIN SODIUM
     Route: 065
     Dates: start: 20240326
  165. CERTOPARIN SODIUM [Concomitant]
     Active Substance: CERTOPARIN SODIUM
     Route: 065
     Dates: start: 20240326
  166. CERTOPARIN SODIUM [Concomitant]
     Active Substance: CERTOPARIN SODIUM
     Route: 065
     Dates: start: 20240326
  167. CERTOPARIN SODIUM [Concomitant]
     Active Substance: CERTOPARIN SODIUM
     Route: 065
     Dates: start: 20240326
  168. CERTOPARIN SODIUM [Concomitant]
     Active Substance: CERTOPARIN SODIUM
     Route: 065
     Dates: end: 20240209
  169. CERTOPARIN SODIUM [Concomitant]
     Active Substance: CERTOPARIN SODIUM
     Route: 065
     Dates: end: 20240209
  170. CERTOPARIN SODIUM [Concomitant]
     Active Substance: CERTOPARIN SODIUM
     Route: 065
     Dates: end: 20240209
  171. CERTOPARIN SODIUM [Concomitant]
     Active Substance: CERTOPARIN SODIUM
     Route: 065
     Dates: end: 20240209
  172. CERTOPARIN SODIUM [Concomitant]
     Active Substance: CERTOPARIN SODIUM
     Route: 065
     Dates: end: 20240209
  173. CERTOPARIN SODIUM [Concomitant]
     Active Substance: CERTOPARIN SODIUM
     Route: 065
     Dates: end: 20240209
  174. CERTOPARIN SODIUM [Concomitant]
     Active Substance: CERTOPARIN SODIUM
     Route: 065
     Dates: end: 20240209
  175. CERTOPARIN SODIUM [Concomitant]
     Active Substance: CERTOPARIN SODIUM
     Route: 065
  176. CERTOPARIN SODIUM [Concomitant]
     Active Substance: CERTOPARIN SODIUM
     Route: 065
  177. CERTOPARIN SODIUM [Concomitant]
     Active Substance: CERTOPARIN SODIUM
     Route: 065
  178. METAMIZOLE [Concomitant]
     Active Substance: METAMIZOLE
     Indication: Product used for unknown indication
     Route: 065
  179. METAMIZOLE [Concomitant]
     Active Substance: METAMIZOLE
     Route: 065
  180. METAMIZOLE [Concomitant]
     Active Substance: METAMIZOLE
     Route: 065
  181. METAMIZOLE [Concomitant]
     Active Substance: METAMIZOLE
     Route: 065
  182. METAMIZOLE [Concomitant]
     Active Substance: METAMIZOLE
     Route: 065
  183. METAMIZOLE [Concomitant]
     Active Substance: METAMIZOLE
     Route: 065
  184. METAMIZOLE [Concomitant]
     Active Substance: METAMIZOLE
     Route: 065
  185. METAMIZOLE [Concomitant]
     Active Substance: METAMIZOLE
     Route: 065
  186. METAMIZOLE [Concomitant]
     Active Substance: METAMIZOLE
     Route: 065
  187. METAMIZOLE [Concomitant]
     Active Substance: METAMIZOLE
     Route: 065
  188. METAMIZOLE [Concomitant]
     Active Substance: METAMIZOLE
     Route: 065
  189. METAMIZOLE [Concomitant]
     Active Substance: METAMIZOLE
     Route: 065
  190. METAMIZOLE [Concomitant]
     Active Substance: METAMIZOLE
     Route: 065
  191. METAMIZOLE [Concomitant]
     Active Substance: METAMIZOLE
     Route: 065
  192. METAMIZOLE [Concomitant]
     Active Substance: METAMIZOLE
     Route: 065
  193. METAMIZOLE [Concomitant]
     Active Substance: METAMIZOLE
     Route: 065
  194. METAMIZOLE [Concomitant]
     Active Substance: METAMIZOLE
     Route: 065
  195. METAMIZOLE [Concomitant]
     Active Substance: METAMIZOLE
     Route: 065
  196. METAMIZOLE [Concomitant]
     Active Substance: METAMIZOLE
     Route: 065
  197. METAMIZOLE [Concomitant]
     Active Substance: METAMIZOLE
     Route: 065
  198. METAMIZOLE [Concomitant]
     Active Substance: METAMIZOLE
     Route: 065
  199. ONDANSETRON [Concomitant]
     Active Substance: ONDANSETRON
     Indication: Product used for unknown indication
     Route: 065
  200. ONDANSETRON [Concomitant]
     Active Substance: ONDANSETRON
     Route: 065
     Dates: end: 20231214
  201. ONDANSETRON [Concomitant]
     Active Substance: ONDANSETRON
     Route: 065
     Dates: end: 20231214
  202. ONDANSETRON [Concomitant]
     Active Substance: ONDANSETRON
     Route: 065
     Dates: end: 20231214
  203. ONDANSETRON [Concomitant]
     Active Substance: ONDANSETRON
     Route: 065
     Dates: end: 20231214
  204. ONDANSETRON [Concomitant]
     Active Substance: ONDANSETRON
     Route: 065
  205. ONDANSETRON [Concomitant]
     Active Substance: ONDANSETRON
     Route: 065
  206. ONDANSETRON [Concomitant]
     Active Substance: ONDANSETRON
     Route: 065
  207. ONDANSETRON [Concomitant]
     Active Substance: ONDANSETRON
     Route: 065
  208. ONDANSETRON [Concomitant]
     Active Substance: ONDANSETRON
     Route: 065
  209. ONDANSETRON [Concomitant]
     Active Substance: ONDANSETRON
     Route: 065
  210. ONDANSETRON [Concomitant]
     Active Substance: ONDANSETRON
     Route: 065
  211. ONDANSETRON [Concomitant]
     Active Substance: ONDANSETRON
     Route: 065
  212. ONDANSETRON [Concomitant]
     Active Substance: ONDANSETRON
     Route: 065
  213. ONDANSETRON [Concomitant]
     Active Substance: ONDANSETRON
     Route: 065
  214. ONDANSETRON [Concomitant]
     Active Substance: ONDANSETRON
     Route: 065
  215. ONDANSETRON [Concomitant]
     Active Substance: ONDANSETRON
     Route: 065
  216. ONDANSETRON [Concomitant]
     Active Substance: ONDANSETRON
     Route: 065
  217. ONDANSETRON [Concomitant]
     Active Substance: ONDANSETRON
     Route: 065
  218. ONDANSETRON [Concomitant]
     Active Substance: ONDANSETRON
     Route: 065
  219. ONDANSETRON [Concomitant]
     Active Substance: ONDANSETRON
     Route: 065
  220. ONDANSETRON [Concomitant]
     Active Substance: ONDANSETRON
     Route: 065
  221. PANTOPRAZOLE [Concomitant]
     Active Substance: PANTOPRAZOLE
     Indication: Prophylaxis
     Route: 065
  222. PANTOPRAZOLE [Concomitant]
     Active Substance: PANTOPRAZOLE
     Route: 065
  223. PANTOPRAZOLE [Concomitant]
     Active Substance: PANTOPRAZOLE
     Route: 065
  224. PANTOPRAZOLE [Concomitant]
     Active Substance: PANTOPRAZOLE
     Route: 065
  225. PANTOPRAZOLE [Concomitant]
     Active Substance: PANTOPRAZOLE
     Route: 065
  226. PANTOPRAZOLE [Concomitant]
     Active Substance: PANTOPRAZOLE
     Route: 065
  227. PANTOPRAZOLE [Concomitant]
     Active Substance: PANTOPRAZOLE
     Route: 065
  228. PANTOPRAZOLE [Concomitant]
     Active Substance: PANTOPRAZOLE
     Route: 065
  229. PANTOPRAZOLE [Concomitant]
     Active Substance: PANTOPRAZOLE
     Route: 065
  230. PANTOPRAZOLE [Concomitant]
     Active Substance: PANTOPRAZOLE
     Route: 065
  231. PANTOPRAZOLE [Concomitant]
     Active Substance: PANTOPRAZOLE
     Route: 065
  232. PANTOPRAZOLE [Concomitant]
     Active Substance: PANTOPRAZOLE
     Route: 065
  233. PANTOPRAZOLE [Concomitant]
     Active Substance: PANTOPRAZOLE
     Route: 065
  234. PANTOPRAZOLE [Concomitant]
     Active Substance: PANTOPRAZOLE
     Route: 065
  235. PANTOPRAZOLE [Concomitant]
     Active Substance: PANTOPRAZOLE
     Route: 065
  236. PANTOPRAZOLE [Concomitant]
     Active Substance: PANTOPRAZOLE
     Route: 065
  237. PANTOPRAZOLE [Concomitant]
     Active Substance: PANTOPRAZOLE
     Route: 065
  238. PANTOPRAZOLE [Concomitant]
     Active Substance: PANTOPRAZOLE
     Route: 065
  239. PANTOPRAZOLE [Concomitant]
     Active Substance: PANTOPRAZOLE
     Route: 065
  240. PANTOPRAZOLE [Concomitant]
     Active Substance: PANTOPRAZOLE
     Route: 065
  241. PANTOPRAZOLE [Concomitant]
     Active Substance: PANTOPRAZOLE
     Route: 065
  242. PANTOPRAZOLE [Concomitant]
     Active Substance: PANTOPRAZOLE
     Route: 065
  243. TAVOR (LORAZEPAM) [Concomitant]
     Active Substance: LORAZEPAM
     Indication: Product used for unknown indication
     Route: 065
     Dates: start: 20231219
  244. TAVOR (LORAZEPAM) [Concomitant]
     Active Substance: LORAZEPAM
     Route: 065
     Dates: start: 20231219
  245. TAVOR (LORAZEPAM) [Concomitant]
     Active Substance: LORAZEPAM
     Route: 065
     Dates: start: 20231219
  246. TAVOR (LORAZEPAM) [Concomitant]
     Active Substance: LORAZEPAM
     Route: 065
     Dates: start: 20231219
  247. TAVOR (LORAZEPAM) [Concomitant]
     Active Substance: LORAZEPAM
     Route: 065
     Dates: start: 20231219
  248. TAVOR (LORAZEPAM) [Concomitant]
     Active Substance: LORAZEPAM
     Route: 065
     Dates: start: 20231219
  249. TAVOR (LORAZEPAM) [Concomitant]
     Active Substance: LORAZEPAM
     Route: 065
     Dates: start: 20231219
  250. TAVOR (LORAZEPAM) [Concomitant]
     Active Substance: LORAZEPAM
     Route: 065
     Dates: start: 20231219
  251. TAVOR (LORAZEPAM) [Concomitant]
     Active Substance: LORAZEPAM
     Route: 065
     Dates: start: 20231219
  252. TAVOR (LORAZEPAM) [Concomitant]
     Active Substance: LORAZEPAM
     Route: 065
     Dates: start: 20231219
  253. TAVOR (LORAZEPAM) [Concomitant]
     Active Substance: LORAZEPAM
     Route: 065
     Dates: start: 20231219
  254. TAVOR (LORAZEPAM) [Concomitant]
     Active Substance: LORAZEPAM
     Route: 065
     Dates: start: 20231219
  255. TAVOR (LORAZEPAM) [Concomitant]
     Active Substance: LORAZEPAM
     Route: 065
     Dates: start: 20231219
  256. TAVOR (LORAZEPAM) [Concomitant]
     Active Substance: LORAZEPAM
     Route: 065
     Dates: start: 20231219
  257. TAVOR (LORAZEPAM) [Concomitant]
     Active Substance: LORAZEPAM
     Route: 065
     Dates: start: 20231219
  258. TAVOR (LORAZEPAM) [Concomitant]
     Active Substance: LORAZEPAM
     Route: 065
     Dates: start: 20231219
  259. TAVOR (LORAZEPAM) [Concomitant]
     Active Substance: LORAZEPAM
     Route: 065
     Dates: start: 20231219
  260. TAVOR (LORAZEPAM) [Concomitant]
     Active Substance: LORAZEPAM
     Route: 065
     Dates: start: 20231219
  261. TAVOR (LORAZEPAM) [Concomitant]
     Active Substance: LORAZEPAM
     Route: 065
     Dates: start: 20231219
  262. TAVOR (LORAZEPAM) [Concomitant]
     Active Substance: LORAZEPAM
     Route: 065
     Dates: start: 20231219
  263. TAVOR (LORAZEPAM) [Concomitant]
     Active Substance: LORAZEPAM
     Route: 065
     Dates: start: 20231219
  264. TEMAZEPAM [Concomitant]
     Active Substance: TEMAZEPAM
     Indication: Product used for unknown indication
     Route: 065
  265. TEMAZEPAM [Concomitant]
     Active Substance: TEMAZEPAM
     Route: 065
     Dates: start: 20231206, end: 20231206
  266. TEMAZEPAM [Concomitant]
     Active Substance: TEMAZEPAM
     Route: 065
     Dates: end: 20231217
  267. TEMAZEPAM [Concomitant]
     Active Substance: TEMAZEPAM
     Route: 065
     Dates: end: 20231217
  268. TEMAZEPAM [Concomitant]
     Active Substance: TEMAZEPAM
     Route: 065
     Dates: end: 20231217
  269. TEMAZEPAM [Concomitant]
     Active Substance: TEMAZEPAM
     Route: 065
     Dates: end: 20231217
  270. TEMAZEPAM [Concomitant]
     Active Substance: TEMAZEPAM
     Route: 065
     Dates: end: 20231217
  271. TEMAZEPAM [Concomitant]
     Active Substance: TEMAZEPAM
     Route: 065
     Dates: end: 20231217
  272. TEMAZEPAM [Concomitant]
     Active Substance: TEMAZEPAM
     Route: 065
  273. TEMAZEPAM [Concomitant]
     Active Substance: TEMAZEPAM
     Route: 065
  274. TEMAZEPAM [Concomitant]
     Active Substance: TEMAZEPAM
     Route: 065
  275. TEMAZEPAM [Concomitant]
     Active Substance: TEMAZEPAM
     Route: 065
  276. TEMAZEPAM [Concomitant]
     Active Substance: TEMAZEPAM
     Route: 065
  277. TEMAZEPAM [Concomitant]
     Active Substance: TEMAZEPAM
     Route: 065
  278. TEMAZEPAM [Concomitant]
     Active Substance: TEMAZEPAM
     Route: 065
  279. TEMAZEPAM [Concomitant]
     Active Substance: TEMAZEPAM
     Route: 065
  280. TEMAZEPAM [Concomitant]
     Active Substance: TEMAZEPAM
     Route: 065
  281. TEMAZEPAM [Concomitant]
     Active Substance: TEMAZEPAM
     Route: 065
  282. TEMAZEPAM [Concomitant]
     Active Substance: TEMAZEPAM
     Route: 065
  283. TEMAZEPAM [Concomitant]
     Active Substance: TEMAZEPAM
     Route: 065
  284. TEMAZEPAM [Concomitant]
     Active Substance: TEMAZEPAM
     Route: 065
  285. VITAMIN B12 [Concomitant]
     Active Substance: CYANOCOBALAMIN
     Indication: Prophylaxis
     Route: 065
     Dates: start: 20231127, end: 20231127
  286. DOXYLAMINE\FOLIC ACID\PYRIDOXINE [Concomitant]
     Active Substance: DOXYLAMINE\FOLIC ACID\PYRIDOXINE
     Indication: Product used for unknown indication
     Route: 065
     Dates: start: 20231212, end: 20231212
  287. DOXYLAMINE\FOLIC ACID\PYRIDOXINE [Concomitant]
     Active Substance: DOXYLAMINE\FOLIC ACID\PYRIDOXINE
     Route: 065
     Dates: start: 20231212, end: 20231212
  288. DOXYLAMINE\FOLIC ACID\PYRIDOXINE [Concomitant]
     Active Substance: DOXYLAMINE\FOLIC ACID\PYRIDOXINE
     Route: 065
     Dates: start: 20231212, end: 20231212
  289. DOXYLAMINE\FOLIC ACID\PYRIDOXINE [Concomitant]
     Active Substance: DOXYLAMINE\FOLIC ACID\PYRIDOXINE
     Route: 065
     Dates: start: 20231212, end: 20231212
  290. DOXYLAMINE\FOLIC ACID\PYRIDOXINE [Concomitant]
     Active Substance: DOXYLAMINE\FOLIC ACID\PYRIDOXINE
     Route: 065
     Dates: start: 20231212, end: 20231212
  291. DOXYLAMINE\FOLIC ACID\PYRIDOXINE [Concomitant]
     Active Substance: DOXYLAMINE\FOLIC ACID\PYRIDOXINE
     Route: 065

REACTIONS (17)
  - Post procedural sepsis [Recovered/Resolved]
  - Hypotonia [Recovered/Resolved]
  - Gastrointestinal disorder [Not Recovered/Not Resolved]
  - Infection [Recovered/Resolved]
  - Perirectal abscess [Recovered/Resolved]
  - Leukopenia [Recovered/Resolved]
  - C-reactive protein increased [Not Recovered/Not Resolved]
  - Coronavirus test positive [Recovered/Resolved]
  - General physical health deterioration [Not Recovered/Not Resolved]
  - Sleep disorder [Not Recovered/Not Resolved]
  - White blood cell count increased [Unknown]
  - Depression [Not Recovered/Not Resolved]
  - Nausea [Recovered/Resolved]
  - Vomiting [Recovered/Resolved]
  - Rash pruritic [Recovered/Resolved]
  - Stomatitis [Recovered/Resolved]
  - Decreased appetite [Recovered/Resolved]

NARRATIVE: CASE EVENT DATE: 20231208
